FAERS Safety Report 24743100 (Version 1)
Quarter: 2024Q4

REPORT INFORMATION
  Report Type: Spontaneous
  Country: US (occurrence: US)
  Receive Date: 20241217
  Receipt Date: 20241217
  Transmission Date: 20250115
  Serious: Yes (Hospitalization, Other)
  Sender: MERCK
  Company Number: US-009507513-2412USA004308

PATIENT
  Age: 67 Year
  Sex: Female

DRUGS (2)
  1. KEYTRUDA [Suspect]
     Active Substance: PEMBROLIZUMAB
     Indication: Endometrial adenocarcinoma
     Dosage: 200 MILLIGRAM, Q3W; 9 CYCLES
     Dates: start: 202203, end: 2022
  2. KEYTRUDA [Suspect]
     Active Substance: PEMBROLIZUMAB
     Dosage: 400 MILLIGRAM, EVERY 6 WEEKS; 3 CYCLES
     Dates: start: 2022, end: 202212

REACTIONS (4)
  - Splenic infarction [Recovered/Resolved]
  - Cerebrovascular accident [Recovered/Resolved]
  - Immune-mediated myocarditis [Recovering/Resolving]
  - Off label use [Unknown]

NARRATIVE: CASE EVENT DATE: 20220101
